FAERS Safety Report 5152168-X (Version None)
Quarter: 2006Q4

REPORT INFORMATION
  Report Type: 
  Country: None (occurrence: None)
  Receive Date: 20061116
  Receipt Date: 20060912
  Transmission Date: 20070319
  Serious: Yes (Hospitalization)
  Sender: FDA-Public Use
  Company Number: JP-JPN-A200603657

PATIENT
  Age: 39 Year
  Sex: Female
  Weight: 44 kg

DRUGS (6)
  1. ZOVIRAX [Suspect]
     Indication: ENCEPHALITIS HERPES
     Dosage: 500MG THREE TIMES PER DAY
     Route: 042
     Dates: start: 20060905, end: 20060908
  2. ALEVIATIN [Suspect]
     Indication: EPILEPSY
     Route: 048
     Dates: start: 20060805, end: 20060831
  3. DECADRON [Suspect]
     Indication: ENCEPHALITIS HERPES
     Dosage: 8MG PER DAY
     Route: 042
     Dates: start: 20060902, end: 20060908
  4. VALTREX [Concomitant]
     Indication: ENCEPHALITIS HERPES
     Dosage: 2000MG PER DAY
     Route: 048
     Dates: start: 20060731, end: 20060807
  5. DEXAMETHASONE TAB [Concomitant]
     Indication: ENCEPHALITIS HERPES
     Dates: start: 20060905
  6. INTRAVENOUS NUTRITIVE MIXTURE [Concomitant]

REACTIONS (4)
  - AKINESIA [None]
  - DRUG TOXICITY [None]
  - DYSKINESIA [None]
  - ORAL INTAKE REDUCED [None]
